FAERS Safety Report 17557401 (Version 1)
Quarter: 2020Q1

REPORT INFORMATION
  Report Type: Spontaneous
  Country: US (occurrence: US)
  Receive Date: 20200318
  Receipt Date: 20200318
  Transmission Date: 20200409
  Serious: Yes (Life-Threatening, Hospitalization)
  Sender: FDA-Public Use
  Company Number: US-TEVA-2020-US-1204074

PATIENT
  Age: 18 Year
  Sex: Male

DRUGS (23)
  1. METHYLPREDNISOLONE. [Suspect]
     Active Substance: METHYLPREDNISOLONE
     Indication: STATUS EPILEPTICUS
     Dosage: ADMINISTERED AS AN EMPERIC TREATMENT
     Route: 065
  2. DOXYCYCLINE. [Concomitant]
     Active Substance: DOXYCYCLINE
     Indication: ANTIBIOTIC PROPHYLAXIS
     Route: 065
  3. LACOSAMIDE. [Suspect]
     Active Substance: LACOSAMIDE
     Indication: STATUS EPILEPTICUS
     Route: 065
  4. RITUXIMAB. [Concomitant]
     Active Substance: RITUXIMAB
     Indication: STATUS EPILEPTICUS
     Route: 065
  5. LEVETIRACETAM. [Suspect]
     Active Substance: LEVETIRACETAM
     Indication: STATUS EPILEPTICUS
     Route: 065
  6. PROPOFOL. [Suspect]
     Active Substance: PROPOFOL
     Indication: STATUS EPILEPTICUS
     Dosage: ADMINISTERED UP TO 150MCG/KG/MIN-1 WITH INTERMITTENT BOLUSES
     Route: 050
  7. TOPIRAMATE. [Suspect]
     Active Substance: TOPIRAMATE
     Dosage: AT THE TIME OF DISCHARGE
     Route: 048
  8. PHENOBARBITAL. [Interacting]
     Active Substance: PHENOBARBITAL
     Dosage: FOUR TIMES DAILY; STARTED RECEIVING AT THE TIME OF DISCHARGE
     Route: 048
  9. TOPIRAMATE. [Suspect]
     Active Substance: TOPIRAMATE
     Indication: STATUS EPILEPTICUS
     Route: 065
  10. VALPROIC ACID. [Suspect]
     Active Substance: VALPROIC ACID
     Indication: STATUS EPILEPTICUS
     Route: 065
  11. FELBAMATE. [Suspect]
     Active Substance: FELBAMATE
     Indication: STATUS EPILEPTICUS
     Route: 065
  12. KETAMINE [Suspect]
     Active Substance: KETAMINE
     Indication: STATUS EPILEPTICUS
     Route: 050
  13. LORAZEPAM. [Suspect]
     Active Substance: LORAZEPAM
     Indication: STATUS EPILEPTICUS
     Dosage: FREQUENCY: AS NEEDED
     Route: 065
  14. OXCARBAZEPINE. [Suspect]
     Active Substance: OXCARBAZEPINE
     Indication: STATUS EPILEPTICUS
     Route: 065
  15. PHENOBARBITAL. [Interacting]
     Active Substance: PHENOBARBITAL
     Indication: STATUS EPILEPTICUS
     Route: 050
  16. VANCOMYCIN [Concomitant]
     Active Substance: VANCOMYCIN
     Indication: PROPHYLAXIS
     Route: 065
  17. ACYCLOVIR. [Concomitant]
     Active Substance: ACYCLOVIR
     Indication: PROPHYLAXIS
     Route: 065
  18. CEFTRIAXONE. [Concomitant]
     Active Substance: CEFTRIAXONE
     Indication: PROPHYLAXIS
     Route: 065
  19. CLOBAZAM. [Suspect]
     Active Substance: CLOBAZAM
     Indication: STATUS EPILEPTICUS
     Route: 065
  20. PENTOBARBITAL. [Suspect]
     Active Substance: PENTOBARBITAL
     Indication: STATUS EPILEPTICUS
     Route: 050
  21. FOSPHENYTOIN [Interacting]
     Active Substance: FOSPHENYTOIN
     Indication: STATUS EPILEPTICUS
     Dosage: ADMINISTERED WITH LOADING AND MAINTENANCE DOSE
     Route: 065
  22. IMMUNOGLOBULIN [IMMUNOGLOBULINS NOS] [Suspect]
     Active Substance: IMMUNE GLOBULIN NOS
     Indication: STATUS EPILEPTICUS
     Dosage: ADMINISTERED AS AN EMPERIC TREATMENT
     Route: 042
  23. MIDAZOLAM HYDROCHLORIDE. [Suspect]
     Active Substance: MIDAZOLAM HYDROCHLORIDE
     Indication: STATUS EPILEPTICUS
     Dosage: INFUSION WAS INITIATED AND UP-TITRATED TO 60MG H-1
     Route: 050

REACTIONS (5)
  - Drug interaction [Unknown]
  - Drug level below therapeutic [Unknown]
  - Drug ineffective [Unknown]
  - Diabetes insipidus [Unknown]
  - Drug level above therapeutic [Unknown]
